FAERS Safety Report 9366184 (Version 2)
Quarter: 2013Q2

REPORT INFORMATION
  Report Type: Spontaneous
  Country: DE (occurrence: None)
  Receive Date: 20130619
  Receipt Date: 20130627
  Transmission Date: 20140414
  Serious: Yes (Hospitalization)
  Sender: FDA-Public Use
  Company Number: TPG2013A00650

PATIENT
  Age: 52 Year
  Sex: Male

DRUGS (1)
  1. EDARBI [Suspect]
     Indication: ESSENTIAL HYPERTENSION
     Dosage: (40 MG, 1 IN 1 D)
     Route: 048
     Dates: start: 20120313, end: 20130402

REACTIONS (1)
  - Ischaemic stroke [None]
